FAERS Safety Report 13283964 (Version 1)
Quarter: 2017Q1

REPORT INFORMATION
  Report Type: Spontaneous
  Country: FR (occurrence: FR)
  Receive Date: 20170301
  Receipt Date: 20170301
  Transmission Date: 20170428
  Serious: Yes (Disabling)
  Sender: FDA-Public Use
  Company Number: FR-H14001-15-01378

PATIENT
  Age: 69 Year
  Sex: Male
  Weight: 65 kg

DRUGS (10)
  1. CERUBIDINE [Suspect]
     Active Substance: DAUNORUBICIN HYDROCHLORIDE
     Route: 042
     Dates: start: 20080619, end: 20080620
  2. MYLOTARG [Suspect]
     Active Substance: GEMTUZUMAB OZOGAMICIN
     Route: 041
     Dates: start: 20080619, end: 20080619
  3. GRANOCYTE 34 [Concomitant]
     Active Substance: LENOGRASTIM
     Indication: PRODUCT USED FOR UNKNOWN INDICATION
     Route: 065
     Dates: start: 20080704, end: 20080715
  4. ARACYTINE [Suspect]
     Active Substance: CYTARABINE
     Route: 042
     Dates: start: 20080619, end: 20080622
  5. ARACYTINE [Suspect]
     Active Substance: CYTARABINE
     Indication: ACUTE MYELOID LEUKAEMIA
     Route: 042
     Dates: start: 20080229, end: 20080306
  6. CERUBIDINE [Suspect]
     Active Substance: DAUNORUBICIN HYDROCHLORIDE
     Indication: ACUTE MYELOID LEUKAEMIA
     Route: 042
     Dates: start: 20080229, end: 20080302
  7. MYLOTARG [Suspect]
     Active Substance: GEMTUZUMAB OZOGAMICIN
     Indication: ACUTE MYELOID LEUKAEMIA
     Route: 041
     Dates: start: 20080229, end: 20080306
  8. MYLOTARG [Suspect]
     Active Substance: GEMTUZUMAB OZOGAMICIN
     Route: 041
     Dates: start: 20080416, end: 20080416
  9. TIENAM [Suspect]
     Active Substance: CILASTATIN SODIUM\IMIPENEM
     Route: 042
     Dates: start: 20080607, end: 20080617
  10. VFEND [Suspect]
     Active Substance: VORICONAZOLE
     Route: 042
     Dates: start: 20080607

REACTIONS (8)
  - Acute kidney injury [Recovered/Resolved]
  - Agitation [Recovered/Resolved]
  - Hypertension [Recovered/Resolved]
  - Septic embolus [Recovered/Resolved with Sequelae]
  - Hallucination, visual [Recovered/Resolved]
  - Disorientation [Recovered/Resolved]
  - Aspergillus infection [Recovered/Resolved with Sequelae]
  - Febrile bone marrow aplasia [Recovered/Resolved]

NARRATIVE: CASE EVENT DATE: 20080620
